FAERS Safety Report 14984408 (Version 2)
Quarter: 2020Q3

REPORT INFORMATION
  Report Type: Report from Study
  Country: US (occurrence: US)
  Receive Date: 20180607
  Receipt Date: 20180615
  Transmission Date: 20201104
  Serious: Yes (Hospitalization)
  Sender: FDA-Public Use
  Company Number: US-JNJFOC-20180541662

PATIENT
  Age: 83 Year
  Sex: Male
  Weight: 67.5 kg

DRUGS (10)
  1. LASIX [Concomitant]
     Active Substance: FUROSEMIDE
     Indication: PROPHYLAXIS
     Route: 048
     Dates: start: 20180308
  2. DARATUMUMAB [Suspect]
     Active Substance: DARATUMUMAB
     Indication: AMYLOIDOSIS
     Route: 058
     Dates: start: 20180306, end: 20180529
  3. NEXIUM [Concomitant]
     Active Substance: ESOMEPRAZOLE MAGNESIUM
     Route: 048
  4. BORTEZOMIB. [Suspect]
     Active Substance: BORTEZOMIB
     Indication: AMYLOIDOSIS
     Route: 058
     Dates: start: 20180306, end: 20180529
  5. CYCLOPHOSPHAMIDE. [Suspect]
     Active Substance: CYCLOPHOSPHAMIDE
     Indication: AMYLOIDOSIS
     Route: 048
     Dates: start: 20180306, end: 20180529
  6. PROVENTIL [Concomitant]
     Active Substance: ALBUTEROL
     Indication: WHEEZING
  7. DARATUMUMAB [Suspect]
     Active Substance: DARATUMUMAB
     Route: 058
  8. ZOVIRAX [Concomitant]
     Active Substance: ACYCLOVIR
     Route: 048
  9. DEXAMETHASONE. [Suspect]
     Active Substance: DEXAMETHASONE
     Indication: AMYLOIDOSIS
     Route: 048
     Dates: start: 20180306, end: 20180529
  10. ALDACTONE [Concomitant]
     Active Substance: SPIRONOLACTONE
     Route: 048

REACTIONS (2)
  - Cardiac failure congestive [Not Recovered/Not Resolved]
  - Mental status changes [Not Recovered/Not Resolved]

NARRATIVE: CASE EVENT DATE: 20180529
